FAERS Safety Report 8382091-9 (Version None)
Quarter: 2012Q1

REPORT INFORMATION
  Report Type: 
  Country: None (occurrence: None)
  Receive Date: 20120323
  Receipt Date: 20110602
  Transmission Date: 20120608
  Serious: Yes (Death, Life-Threatening, Other)
  Sender: FDA-Public Use
  Company Number: 163-21880-11051761

PATIENT
  Age: 75 Year
  Sex: Female

DRUGS (9)
  1. DEXAMETHASONE [Concomitant]
  2. MULTIVITAMIN [Concomitant]
  3. HYDROCHLOROTHIAZIDE [Concomitant]
  4. VERAPAMIL [Concomitant]
  5. REVLIMID [Suspect]
     Indication: MULTIPLE MYELOMA
     Dosage: 25 MG, DAILY AS DIRECTED 21 DAYS, STOP X 7 DAYS, PO
     Route: 048
     Dates: start: 20110401
  6. LISINOPRIL [Concomitant]
  7. COUMADIN [Concomitant]
  8. ZOMETA [Concomitant]
  9. COENZYME Q10 [Concomitant]

REACTIONS (1)
  - ISCHAEMIC STROKE [None]
